APPROVED DRUG PRODUCT: MITOMYCIN
Active Ingredient: MITOMYCIN
Strength: 5MG/VIAL
Dosage Form/Route: INJECTABLE;INJECTION
Application: A064117 | Product #001
Applicant: HIKMA PHARMACEUTICALS USA INC
Approved: Apr 19, 1995 | RLD: No | RS: No | Type: DISCN